FAERS Safety Report 8515572-5 (Version None)
Quarter: 2012Q3

REPORT INFORMATION
  Report Type: 
  Country: None (occurrence: None)
  Receive Date: 20120717
  Receipt Date: 20120710
  Transmission Date: 20120928
  Serious: Yes (Hospitalization, Other)
  Sender: FDA-Public Use
  Company Number: PHHY2012CA060628

PATIENT
  Sex: Female

DRUGS (1)
  1. ZOLEDRONOC ACID [Suspect]
     Indication: OSTEOPOROSIS
     Dosage: UNK
     Route: 042
     Dates: start: 20110809

REACTIONS (6)
  - ASTHENIA [None]
  - WEIGHT DECREASED [None]
  - MYOCARDIAL INFARCTION [None]
  - CYSTITIS [None]
  - CARDIAC FAILURE [None]
  - BLADDER DILATATION [None]
